FAERS Safety Report 17767276 (Version 2)
Quarter: 2020Q2

REPORT INFORMATION
  Report Type: Spontaneous
  Country: US (occurrence: US)
  Receive Date: 20200511
  Receipt Date: 20200516
  Transmission Date: 20200714
  Serious: Yes (Other)
  Sender: FDA-Public Use
  Company Number: US-JNJFOC-20200504867

PATIENT
  Sex: Male
  Weight: 113.5 kg

DRUGS (1)
  1. TYLENOL [Suspect]
     Active Substance: ACETAMINOPHEN
     Indication: PAIN MANAGEMENT
     Dosage: 2 TABLETS TWICE DAILY
     Route: 048
     Dates: start: 20200413, end: 20200504

REACTIONS (4)
  - Discoloured vomit [Recovered/Resolved]
  - Pain [Recovered/Resolved]
  - Haematemesis [Recovered/Resolved]
  - Vomiting projectile [Recovered/Resolved]

NARRATIVE: CASE EVENT DATE: 20200504
